FAERS Safety Report 22813193 (Version 3)
Quarter: 2023Q4

REPORT INFORMATION
  Report Type: Report from Study
  Country: US (occurrence: None)
  Receive Date: 20230811
  Receipt Date: 20231117
  Transmission Date: 20240109
  Serious: Yes (Death)
  Sender: FDA-Public Use
  Company Number: US-ROCHE-3400969

PATIENT
  Age: 63 Year
  Sex: Male
  Weight: 132 kg

DRUGS (22)
  1. POLATUZUMAB VEDOTIN [Suspect]
     Active Substance: POLATUZUMAB VEDOTIN
     Indication: Diffuse large B-cell lymphoma recurrent
     Dosage: 66.7 ML/HR
     Route: 042
     Dates: start: 20221003, end: 20221003
  2. POLATUZUMAB VEDOTIN [Suspect]
     Active Substance: POLATUZUMAB VEDOTIN
     Dosage: 200 ML/HR
     Route: 042
     Dates: start: 20221108, end: 20221108
  3. POLATUZUMAB VEDOTIN [Suspect]
     Active Substance: POLATUZUMAB VEDOTIN
     Dosage: 200 ML/HR
     Route: 042
     Dates: start: 20221201, end: 20221201
  4. POLATUZUMAB VEDOTIN [Suspect]
     Active Substance: POLATUZUMAB VEDOTIN
     Dosage: 200 ML/HR
     Route: 042
     Dates: start: 20221222, end: 20221222
  5. POLATUZUMAB VEDOTIN [Suspect]
     Active Substance: POLATUZUMAB VEDOTIN
     Dosage: 200 ML/HR
     Route: 042
     Dates: start: 20230116, end: 20230116
  6. POLATUZUMAB VEDOTIN [Suspect]
     Active Substance: POLATUZUMAB VEDOTIN
     Dosage: 200 ML/HR
     Route: 042
     Dates: start: 20230206, end: 20230206
  7. LONCASTUXIMAB TESIRINE [Suspect]
     Active Substance: LONCASTUXIMAB TESIRINE
     Indication: Diffuse large B-cell lymphoma recurrent
     Dosage: 100 ML/HR
     Route: 042
     Dates: start: 20221003, end: 20221003
  8. LONCASTUXIMAB TESIRINE [Suspect]
     Active Substance: LONCASTUXIMAB TESIRINE
     Dosage: 100 ML/HR
     Route: 042
     Dates: start: 20221108, end: 20221108
  9. LONCASTUXIMAB TESIRINE [Suspect]
     Active Substance: LONCASTUXIMAB TESIRINE
     Dosage: 100 ML/HR
     Route: 042
     Dates: start: 20221201, end: 20221201
  10. LONCASTUXIMAB TESIRINE [Suspect]
     Active Substance: LONCASTUXIMAB TESIRINE
     Dosage: 100 ML/HR
     Route: 042
     Dates: start: 20221222, end: 20221222
  11. LONCASTUXIMAB TESIRINE [Suspect]
     Active Substance: LONCASTUXIMAB TESIRINE
     Dosage: 100 ML/HR
     Route: 042
     Dates: start: 20230116, end: 20230116
  12. LONCASTUXIMAB TESIRINE [Suspect]
     Active Substance: LONCASTUXIMAB TESIRINE
     Dosage: 100 ML/HR
     Route: 042
     Dates: start: 20230206, end: 20230206
  13. ACETAMINOPHEN [Concomitant]
     Active Substance: ACETAMINOPHEN
  14. GLYCOPYRROLATE [Concomitant]
     Active Substance: GLYCOPYRROLATE
  15. HALOPERIDOL LACTATE [Concomitant]
     Active Substance: HALOPERIDOL LACTATE
  16. KETOROLAC [Concomitant]
     Active Substance: KETOROLAC TROMETHAMINE
  17. LORAZEPAM [Concomitant]
     Active Substance: LORAZEPAM
  18. METOPROLOL [Concomitant]
     Active Substance: METOPROLOL
  19. MORPHINE [Concomitant]
     Active Substance: MORPHINE
  20. GLYCOPYRRONIUM [Concomitant]
     Active Substance: GLYCOPYRRONIUM
  21. HALOPERIDOL LACTATE [Concomitant]
     Active Substance: HALOPERIDOL LACTATE
  22. KETOROLAC [Concomitant]
     Active Substance: KETOROLAC TROMETHAMINE

REACTIONS (1)
  - Myelodysplastic syndrome [Fatal]

NARRATIVE: CASE EVENT DATE: 20230323
